FAERS Safety Report 11867832 (Version 1)
Quarter: 2015Q4

REPORT INFORMATION
  Report Type: Spontaneous
  Country: FR (occurrence: FR)
  Receive Date: 20151224
  Receipt Date: 20151224
  Transmission Date: 20160305
  Serious: Yes (Hospitalization)
  Sender: FDA-Public Use
  Company Number: FR-JNJFOC-20151219342

PATIENT
  Age: 67 Year
  Sex: Male

DRUGS (16)
  1. AMOXICILLIN CLAVULANIC ACID [Suspect]
     Active Substance: AMOXICILLIN\CLAVULANIC ACID
     Indication: ANTIBIOTIC PROPHYLAXIS
     Route: 042
     Dates: start: 20151022, end: 20151023
  2. AMOXICILLIN TRIHYDRATE [Suspect]
     Active Substance: AMOXICILLIN
     Indication: PRODUCT USED FOR UNKNOWN INDICATION
     Route: 042
     Dates: start: 20151022, end: 20151023
  3. EPHEDRINE. [Suspect]
     Active Substance: EPHEDRINE
     Indication: SURGERY
     Route: 065
     Dates: start: 20151022, end: 20151022
  4. PROPOFOL. [Suspect]
     Active Substance: PROPOFOL
     Indication: SURGERY
     Route: 065
     Dates: start: 20151022, end: 20151022
  5. DEXAMETHASONE. [Suspect]
     Active Substance: DEXAMETHASONE
     Indication: SURGERY
     Route: 065
     Dates: start: 20151022, end: 20151022
  6. ACUPAN [Suspect]
     Active Substance: NEFOPAM HYDROCHLORIDE
     Indication: PRODUCT USED FOR UNKNOWN INDICATION
     Route: 042
     Dates: start: 20151022, end: 20151022
  7. CONTRAMAL [Suspect]
     Active Substance: TRAMADOL HYDROCHLORIDE
     Indication: PRODUCT USED FOR UNKNOWN INDICATION
     Route: 065
     Dates: start: 20151022, end: 20151023
  8. KETAMINE PANPHARMA [Suspect]
     Active Substance: KETAMINE
     Indication: SURGERY
     Route: 065
     Dates: start: 20151022, end: 20151022
  9. ATROPINE SULFATE. [Suspect]
     Active Substance: ATROPINE SULFATE
     Indication: SURGERY
     Route: 065
     Dates: start: 20151022, end: 20151022
  10. ATRACURIUM HOSPIRA [Suspect]
     Active Substance: ATRACURIUM
     Indication: SURGERY
     Route: 065
     Dates: start: 20151022, end: 20151022
  11. DROLEPTAN [Suspect]
     Active Substance: DROPERIDOL
     Indication: SURGERY
     Route: 065
     Dates: start: 20151022, end: 20151022
  12. SUFENTANIL [Suspect]
     Active Substance: SUFENTANIL
     Indication: SURGERY
     Route: 065
     Dates: start: 20151022, end: 20151022
  13. NEOSTIGMINE METHYLSULFATE. [Suspect]
     Active Substance: NEOSTIGMINE METHYLSULFATE
     Indication: SURGERY
     Route: 065
     Dates: start: 20151022, end: 20151022
  14. SEVOFLURANE BAXTER [Suspect]
     Active Substance: SEVOFLURANE
     Indication: SURGERY
     Route: 065
     Dates: start: 20151022, end: 20151022
  15. XYLOCAINE [Suspect]
     Active Substance: LIDOCAINE HYDROCHLORIDE
     Indication: SURGERY
     Route: 065
     Dates: start: 20151022, end: 20151122
  16. PARACETAMOL [Concomitant]
     Active Substance: ACETAMINOPHEN
     Indication: PRODUCT USED FOR UNKNOWN INDICATION
     Route: 065
     Dates: start: 20151022

REACTIONS (1)
  - Renal failure [Recovered/Resolved]

NARRATIVE: CASE EVENT DATE: 20151023
